FAERS Safety Report 23756623 (Version 2)
Quarter: 2024Q2

REPORT INFORMATION
  Report Type: Spontaneous
  Country: US (occurrence: US)
  Receive Date: 20240418
  Receipt Date: 20240508
  Transmission Date: 20240716
  Serious: Yes (Other)
  Sender: FDA-Public Use
  Company Number: US-ANIPHARMA-2024-US-022111

PATIENT
  Sex: 0

DRUGS (14)
  1. ARIMIDEX [Suspect]
     Active Substance: ANASTROZOLE
     Indication: Invasive ductal breast carcinoma
     Dates: start: 20220216
  2. ELIQUIS [Concomitant]
     Active Substance: APIXABAN
  3. ADVAIR HFA [Concomitant]
     Active Substance: FLUTICASONE PROPIONATE\SALMETEROL XINAFOATE
  4. LEVOTHYROXINE [Concomitant]
     Active Substance: LEVOTHYROXINE\LEVOTHYROXINE SODIUM
  5. NITROGLYCERIN [Concomitant]
     Active Substance: NITROGLYCERIN
  6. IBRANCE [Suspect]
     Active Substance: PALBOCICLIB
     Dates: start: 20240111
  7. TAXOTERE [Suspect]
     Active Substance: DOCETAXEL
  8. TAXOL [Suspect]
     Active Substance: PACLITAXEL
  9. KISQALI [Suspect]
     Active Substance: RIBOCICLIB
     Dates: start: 20220705
  10. LABETALOL [Concomitant]
     Active Substance: LABETALOL\LABETALOL HYDROCHLORIDE
  11. FLUOXETINE [Concomitant]
     Active Substance: FLUOXETINE HYDROCHLORIDE
  12. Gapabentin [Concomitant]
  13. MELATONIN [Concomitant]
     Active Substance: MELATONIN
  14. PRAVASTATIN [Concomitant]
     Active Substance: PRAVASTATIN

REACTIONS (8)
  - Fatigue [Unknown]
  - Depression [Unknown]
  - Pneumonia [Unknown]
  - Electrocardiogram QT prolonged [Unknown]
  - Cardiac arrest [Unknown]
  - Stent placement [Unknown]
  - Implantable defibrillator insertion [Unknown]
  - Abdominal pain [Not Recovered/Not Resolved]

NARRATIVE: CASE EVENT DATE: 20220901
